FAERS Safety Report 6044990-2 (Version None)
Quarter: 2009Q1

REPORT INFORMATION
  Report Type: 
  Country: None (occurrence: None)
  Receive Date: 20090116
  Receipt Date: 20090116
  Transmission Date: 20090719
  Serious: Yes (Other)
  Sender: FDA-Public Use
  Company Number: None

PATIENT
  Age: 81 Year
  Sex: Male
  Weight: 80 kg

DRUGS (14)
  1. BACTROBAN [Suspect]
     Indication: SKIN ULCER
     Dosage: 1 APPLICATION TWICE DAILY TOP
     Route: 061
  2. ASPIRIN [Concomitant]
  3. CETIRIZINE HCL [Concomitant]
  4. CIPRODEX [Concomitant]
  5. FLUCONAZOLE [Concomitant]
  6. FLOMAX [Concomitant]
  7. GRANULEX [Concomitant]
  8. KEPPRA [Concomitant]
  9. DIGOXIN [Concomitant]
  10. METOPROLOL TARTRATE [Concomitant]
  11. NEXIUM [Concomitant]
  12. ZOCOR [Concomitant]
  13. VANCOMYCIN [Concomitant]
  14. XALATAN [Concomitant]

REACTIONS (2)
  - DRUG HYPERSENSITIVITY [None]
  - RASH [None]
